FAERS Safety Report 9632869 (Version 2)
Quarter: 2014Q3

REPORT INFORMATION
  Report Type: Report from Study
  Country: BR (occurrence: BR)
  Receive Date: 20131018
  Receipt Date: 20140826
  Transmission Date: 20150326
  Serious: Yes (Hospitalization, Other)
  Sender: FDA-Public Use
  Company Number: PHHY2013BR114755

PATIENT
  Age: 76 Year
  Sex: Male
  Weight: 80 kg

DRUGS (8)
  1. DEPURA [Suspect]
     Active Substance: CHOLECALCIFEROL
     Indication: BONE DISORDER
     Dosage: 5 GTT (DROPS), DAILY
     Route: 048
     Dates: start: 2007
  2. CLOPIDOGREL [Suspect]
     Active Substance: CLOPIDOGREL BISULFATE
     Dosage: 1 DF  (TABLET), DAILY
     Route: 048
  3. CLOPIDOGREL [Suspect]
     Active Substance: CLOPIDOGREL BISULFATE
     Indication: CEREBROVASCULAR ACCIDENT
     Dosage: 1 DF  (TABLET), DAILY
     Route: 048
  4. DIAMICRON [Suspect]
     Active Substance: GLICLAZIDE
     Indication: DIABETES MELLITUS
     Dosage: 2 DF (TABLETS), DAILY
     Route: 048
     Dates: start: 2007
  5. LEVOID [Suspect]
     Active Substance: LEVOTHYROXINE
     Indication: THYROID DISORDER
     Dosage: 1 DF (TABLET), DAILY
     Route: 048
     Dates: start: 2010
  6. EXELON [Suspect]
     Active Substance: RIVASTIGMINE TARTRATE
     Indication: DEMENTIA ALZHEIMER^S TYPE
     Dosage: 1 DF (TABLET), DAILY
     Route: 048
     Dates: start: 2013, end: 201307
  7. ASPIRINA PREVENT [Concomitant]
     Active Substance: ASPIRIN
     Indication: BLOOD DISORDER
     Dosage: 1 DF(TABLET), DAILY
     Route: 048
     Dates: start: 2007
  8. GLUCOFORMIN [Suspect]
     Active Substance: METFORMIN HYDROCHLORIDE
     Indication: DIABETES MELLITUS
     Dosage: 2 DF (TABLETS), DAILY
     Route: 048
     Dates: start: 2007

REACTIONS (6)
  - Pneumonia [Recovered/Resolved]
  - Abnormal behaviour [Not Recovered/Not Resolved]
  - Limb injury [Recovered/Resolved]
  - Drug intolerance [Unknown]
  - Fall [Recovered/Resolved]
  - Cerebrovascular accident [Recovered/Resolved]

NARRATIVE: CASE EVENT DATE: 201306
